FAERS Safety Report 17002303 (Version 1)
Quarter: 2019Q4

REPORT INFORMATION
  Report Type: Not Available
  Country: MX (occurrence: MX)
  Receive Date: 20191106
  Receipt Date: 20191106
  Transmission Date: 20200122
  Serious: Yes (Hospitalization)
  Sender: FDA-Public Use
  Company Number: MX-ANIPHARMA-2019-MX-000030

PATIENT
  Age: 56 Year
  Sex: Male

DRUGS (3)
  1. INSULIN PORCINE [Concomitant]
     Active Substance: INSULIN PORK\INSULIN PURIFIED PORK
     Dosage: EVERY DAY / EVERY DAY
     Route: 065
  2. CANDESARTAN CILEXETIL AND HYDROCHLOROTHIAZIDE [Suspect]
     Active Substance: CANDESARTAN CILEXETIL\HYDROCHLOROTHIAZIDE
     Indication: HYPERTENSION
     Dosage: 1 DF TID
     Route: 048
     Dates: start: 2016
  3. EVIPRESS [Concomitant]
     Dosage: TWO TIMES A DAY
     Route: 065

REACTIONS (5)
  - Renal failure [Unknown]
  - Renal injury [Unknown]
  - Weight decreased [Unknown]
  - Diabetes mellitus [Unknown]
  - Off label use [Unknown]

NARRATIVE: CASE EVENT DATE: 2016
